FAERS Safety Report 5528645-6 (Version None)
Quarter: 2007Q4

REPORT INFORMATION
  Report Type: 
  Country: None (occurrence: None)
  Receive Date: 20071129
  Receipt Date: 20071122
  Transmission Date: 20080405
  Serious: Yes (Other)
  Sender: FDA-Public Use
  Company Number: PHBS2007BR19728

PATIENT
  Age: 70 Year
  Sex: Male

DRUGS (1)
  1. GLEEVEC [Suspect]
     Indication: GASTROINTESTINAL STROMAL TUMOUR

REACTIONS (9)
  - CARDIOMYOPATHY [None]
  - CARDIOVASCULAR DISORDER [None]
  - CORONARY REVASCULARISATION [None]
  - DEVICE BREAKAGE [None]
  - OSTEOMYELITIS [None]
  - OSTEOPOROSIS [None]
  - POSTOPERATIVE THORACIC PROCEDURE COMPLICATION [None]
  - SURGERY [None]
  - WOUND INFECTION [None]
